FAERS Safety Report 16432860 (Version 4)
Quarter: 2021Q3

REPORT INFORMATION
  Report Type: Spontaneous
  Country: US (occurrence: US)
  Receive Date: 20190614
  Receipt Date: 20210810
  Transmission Date: 20211014
  Serious: Yes (Other)
  Sender: FDA-Public Use
  Company Number: US-JNJFOC-20190612271

PATIENT
  Age: 60 Year
  Sex: Female
  Weight: 56.75 kg

DRUGS (14)
  1. LEVOXYL [Concomitant]
     Active Substance: LEVOTHYROXINE SODIUM
     Indication: HYPOTHYROIDISM
     Dates: start: 20180722, end: 20181209
  2. ELMIRON [Suspect]
     Active Substance: PENTOSAN POLYSULFATE SODIUM
     Indication: CYSTITIS INTERSTITIAL
     Dosage: STARTED WITH 2 CAPSULES 2 X DAY THEN IN LATER YEARS TOOK 1 CAPSULE IN THE AM
     Route: 048
     Dates: start: 20030828, end: 201810
  3. ELMIRON [Suspect]
     Active Substance: PENTOSAN POLYSULFATE SODIUM
     Dosage: ONCE OR TWICE A DAY TIMES A DAY
     Route: 048
     Dates: end: 2018
  4. ELMIRON [Suspect]
     Active Substance: PENTOSAN POLYSULFATE SODIUM
     Route: 048
     Dates: end: 20181209
  5. FLUTICASONE. [Concomitant]
     Active Substance: FLUTICASONE
     Indication: MULTIPLE ALLERGIES
     Dates: start: 20180330, end: 20181209
  6. ANUSOL [ZINC SULFATE] [Concomitant]
     Indication: HAEMORRHOIDS
     Dates: start: 20181023, end: 20181023
  7. PANTOPRAZOLE [Concomitant]
     Active Substance: PANTOPRAZOLE
     Indication: GASTROOESOPHAGEAL REFLUX DISEASE
     Dates: start: 20180316, end: 20191022
  8. ELMIRON [Suspect]
     Active Substance: PENTOSAN POLYSULFATE SODIUM
     Route: 048
     Dates: start: 2005
  9. BALSALAZIDE DISODIUM. [Concomitant]
     Active Substance: BALSALAZIDE DISODIUM
     Indication: GASTROINTESTINAL DISORDER
     Dates: start: 20180316, end: 20191117
  10. FLUCONAZOLE. [Concomitant]
     Active Substance: FLUCONAZOLE
     Indication: FUNGAL INFECTION
     Dates: start: 20181218, end: 20191213
  11. PREMARIN [Concomitant]
     Active Substance: ESTROGENS, CONJUGATED
     Indication: MENOPAUSE
     Dates: start: 20180913, end: 20191226
  12. PROCTOSOL [Concomitant]
     Indication: HAEMORRHOIDS
     Dates: start: 20181023, end: 20191022
  13. LEVOTHYROXIN [Concomitant]
     Active Substance: LEVOTHYROXINE
     Indication: HYPOTHYROIDISM
     Dates: start: 20180320, end: 20191209
  14. INTRAROSA [Concomitant]
     Active Substance: PRASTERONE
     Indication: DYSPAREUNIA
     Dates: start: 20180824, end: 20191228

REACTIONS (1)
  - Dry age-related macular degeneration [Not Recovered/Not Resolved]

NARRATIVE: CASE EVENT DATE: 2018
